FAERS Safety Report 7166579-4 (Version None)
Quarter: 2010Q4

REPORT INFORMATION
  Report Type: 
  Country: None (occurrence: None)
  Receive Date: 20101216
  Receipt Date: 20101210
  Transmission Date: 20110411
  Serious: Yes (Death)
  Sender: FDA-Public Use
  Company Number: CO-PFIZER INC-2010170125

PATIENT
  Age: 67 Year
  Sex: Female

DRUGS (6)
  1. LIPITOR [Suspect]
     Indication: DYSLIPIDAEMIA
     Dosage: 10 MG, 1X/DAY
     Dates: start: 20100922
  2. OLMETEC [Suspect]
     Indication: HYPERTENSION
     Dosage: 20/12.5MG,1 TABLET DAILY
  3. ENALAPRIL [Concomitant]
     Dosage: 20 MG, 1X/DAY
  4. NIFEDIPINE [Concomitant]
     Dosage: 1 DF, 1X/DAY
  5. INSULIN [Concomitant]
     Dosage: 1 DF, 1X/DAY
  6. METFORMIN [Concomitant]
     Dosage: UNK

REACTIONS (1)
  - DEATH [None]
